FAERS Safety Report 6014012-8 (Version None)
Quarter: 2008Q4

REPORT INFORMATION
  Report Type: 
  Country: None (occurrence: None)
  Receive Date: 20081219
  Receipt Date: 20080102
  Transmission Date: 20090506
  Serious: No
  Sender: FDA-Public Use
  Company Number: A0661898A

PATIENT
  Age: 73 Year
  Sex: Male
  Weight: 73.6 kg

DRUGS (3)
  1. AVODART [Suspect]
     Indication: BENIGN PROSTATIC HYPERPLASIA
     Dosage: .5MG IN THE MORNING
     Route: 048
     Dates: start: 20070707
  2. NEXIUM [Suspect]
     Dosage: 40MG IN THE MORNING
     Route: 048
     Dates: start: 20050101
  3. HYDROCHLOROTHIAZIDE [Concomitant]
     Indication: HYPERTENSION
     Dosage: 25MG IN THE MORNING
     Route: 048
     Dates: start: 20070101

REACTIONS (8)
  - ABDOMINAL DISCOMFORT [None]
  - ABDOMINAL PAIN UPPER [None]
  - DRUG INTERACTION [None]
  - EPIGASTRIC DISCOMFORT [None]
  - EYELID OEDEMA [None]
  - EYELIDS PRURITUS [None]
  - NAUSEA [None]
  - RHINORRHOEA [None]
